FAERS Safety Report 18009606 (Version 4)
Quarter: 2020Q4

REPORT INFORMATION
  Report Type: Spontaneous
  Country: US (occurrence: US)
  Receive Date: 20200710
  Receipt Date: 20201019
  Transmission Date: 20210113
  Serious: Yes (Other)
  Sender: FDA-Public Use
  Company Number: US-SA-2020SA178448

PATIENT

DRUGS (3)
  1. STELARA [Concomitant]
     Active Substance: USTEKINUMAB
  2. DUPIXENT [Suspect]
     Active Substance: DUPILUMAB
     Indication: PRODUCT USED FOR UNKNOWN INDICATION
     Dosage: 300 MG, QOW, SELF INJECTION, DOSE:300MG/2ML
     Route: 058
     Dates: start: 202005
  3. DUPIXENT [Suspect]
     Active Substance: DUPILUMAB
     Dosage: 300 MG, QOW
     Route: 058
     Dates: start: 20200912

REACTIONS (6)
  - Chest pain [Unknown]
  - Nasopharyngitis [Unknown]
  - Bronchitis [Unknown]
  - Thrombosis [Unknown]
  - Gastrooesophageal reflux disease [Unknown]
  - Eye pain [Unknown]

NARRATIVE: CASE EVENT DATE: 2020
